FAERS Safety Report 7381775-9 (Version None)
Quarter: 2011Q1

REPORT INFORMATION
  Report Type: 
  Country: None (occurrence: None)
  Receive Date: 20110329
  Receipt Date: 20110315
  Transmission Date: 20110831
  Serious: Yes (Death)
  Sender: FDA-Public Use
  Company Number: US-GILEAD-2011-0037262

PATIENT
  Sex: Female

DRUGS (22)
  1. LETAIRIS [Suspect]
     Indication: PULMONARY HYPERTENSION
     Route: 048
     Dates: start: 20110201, end: 20110305
  2. LEVOTHYROXINE SODIUM [Concomitant]
  3. DALTEPARIN SODIUM [Concomitant]
  4. COUMADIN [Concomitant]
  5. SPIRONOLACTONE [Concomitant]
  6. AMLODIPINE BESYLATE [Concomitant]
  7. VITAMIN B-12 [Concomitant]
  8. METFORMIN HCL [Concomitant]
  9. PRILOSEC [Concomitant]
  10. TRAMADOL [Concomitant]
  11. LETAIRIS [Suspect]
     Indication: SCLERODERMA
  12. XOPENEX [Concomitant]
  13. FUROSEMIDE [Concomitant]
  14. VITAMIN-MINERAL COMPOUND TAB [Concomitant]
  15. SINGULAIR [Concomitant]
  16. OXYGEN [Concomitant]
  17. LOSARTAN POTASSIUM [Concomitant]
  18. ALPRAZOLAM [Concomitant]
  19. FLUCONAZOLE [Concomitant]
  20. DIGITALIS TAB [Concomitant]
  21. CELLCEPT [Concomitant]
  22. PREDNISONE [Concomitant]

REACTIONS (2)
  - DYSPNOEA [None]
  - PULMONARY ARTERIAL HYPERTENSION [None]
